FAERS Safety Report 8283324-X (Version None)
Quarter: 2012Q2

REPORT INFORMATION
  Report Type: 
  Country: None (occurrence: None)
  Receive Date: 20120413
  Receipt Date: 20120404
  Transmission Date: 20120825
  Serious: Yes (Other)
  Sender: FDA-Public Use
  Company Number: US-BAYER-2011-114279

PATIENT
  Age: 18 Year
  Sex: Female
  Weight: 44 kg

DRUGS (24)
  1. METOCLOPRAMIDE [Concomitant]
     Dosage: 5 MG, 1 TABLET HALF HOUR BEFORE MEALS AND 1 TABLET EVERY NIGHT AT BEDTIME
     Route: 048
     Dates: start: 20100205, end: 20100305
  2. SE-NATAL [Concomitant]
     Dosage: 1 TABLET DAILY
     Route: 048
     Dates: start: 20100316, end: 20100531
  3. NEXIUM [Concomitant]
     Dosage: 40 MG, 1 CAPSULE DAILY
     Route: 048
     Dates: start: 20100423
  4. LORATADINE [Concomitant]
     Dosage: 10 MG, QD
     Route: 048
     Dates: start: 20081216, end: 20111026
  5. CYCLOBENAZPRINE [Concomitant]
     Dosage: 10 MG, 1 TABLET BID
     Route: 048
     Dates: start: 20091106, end: 20110904
  6. METRONIDAZOLE [Concomitant]
     Dosage: 250 MG, BID
     Route: 048
     Dates: start: 20100201, end: 20100421
  7. DICLOFENAC SODIUM [Concomitant]
     Dosage: 50 MG, BID
     Route: 048
     Dates: start: 20100318
  8. GABAPENTIN [Concomitant]
     Dosage: 100 MG, 1 CAPSULE THREE TIMES DAILY
     Route: 048
     Dates: start: 20100318
  9. ACETAMINOPHEN W/ CODEINE [Concomitant]
     Indication: PAIN
     Dosage: UNK1 TABLET EVERY 6 HOURS AS NEEDED
     Route: 048
     Dates: start: 20041117, end: 20100414
  10. LEXAPRO [Concomitant]
     Dosage: 20 MG, 1 TABLET QD
     Route: 048
     Dates: start: 20100129, end: 20100821
  11. ZOLPIDEM [Concomitant]
     Dosage: 10 MG, ONE TABLET AT BEDTIME
     Route: 048
     Dates: start: 20100315, end: 20100610
  12. NAPROXEN [Concomitant]
     Dosage: 500 MG,1 TABLET BID WITH FOOD
     Route: 048
     Dates: start: 20090504, end: 20101230
  13. CLINDAMYCIN [Concomitant]
     Dosage: ONE APPLICATOR AT NIGHT FOR SEVEN NIGHTS
     Route: 067
     Dates: start: 20090828, end: 20100302
  14. ONDANSETRON [Concomitant]
     Dosage: 4 MG, ONE TABLET EVERY 6 HOURS AS NEEDED
     Route: 048
     Dates: start: 20100202, end: 20110801
  15. YAZ [Suspect]
     Indication: DYSMENORRHOEA
     Dosage: UNK
     Dates: start: 20100201, end: 20100519
  16. AMOXICILLIN [Concomitant]
     Dosage: 500 MG, UNK
     Route: 048
     Dates: start: 20041117, end: 20111026
  17. IBUPROFEN [Concomitant]
     Dosage: 800 MG, TID
     Route: 048
     Dates: start: 20081215, end: 20110718
  18. RANITIDINE [Concomitant]
     Dosage: 150 MG, QD
     Route: 048
     Dates: start: 20090730, end: 20100302
  19. MARIJUANA [Concomitant]
  20. YAZ [Suspect]
     Indication: PREMENSTRUAL SYNDROME
  21. SEROQUEL [Concomitant]
     Indication: SLEEP DISORDER
     Dosage: 50 MG, UNK
     Route: 048
     Dates: start: 20040101, end: 20111017
  22. ACETAMINOPHEN AND HYDROCODONE BITARTRATE [Concomitant]
     Dosage: 500 MG, QID
     Route: 048
     Dates: start: 20080313, end: 20111026
  23. PROMETHAZINE [Concomitant]
     Indication: NAUSEA
     Dosage: 25 MG (1 TABLET FOUR TIMES DAILY); 12.5 MG (1 TABLET EVERY 4 TO 6 HOURS)
     Route: 048
     Dates: start: 20080313, end: 20100302
  24. PROMETHAZINE [Concomitant]
     Indication: VOMITING
     Dosage: 12.5 MG, 1 TABLET EVERY 4 TO 6 HOURLY
     Dates: start: 20080313, end: 20100302

REACTIONS (3)
  - CHOLECYSTITIS CHRONIC [None]
  - GALLBLADDER INJURY [None]
  - ABDOMINAL PAIN UPPER [None]
